FAERS Safety Report 16733463 (Version 1)
Quarter: 2019Q3

REPORT INFORMATION
  Report Type: Spontaneous
  Country: AT (occurrence: AT)
  Receive Date: 20190823
  Receipt Date: 20190823
  Transmission Date: 20191005
  Serious: Yes (Other)
  Sender: FDA-Public Use
  Company Number: AT-TEVA-2019-AT-1095439

PATIENT
  Age: 55 Year
  Sex: Male

DRUGS (2)
  1. DICLOBENE 75 MG - AMPULLEN [Suspect]
     Active Substance: DICLOFENAC SODIUM
     Dosage: 75 MG I.V.
     Route: 042
     Dates: start: 20190415, end: 20190415
  2. MEXALEN 500 MG - TABLETTEN [Concomitant]

REACTIONS (2)
  - Type I hypersensitivity [Recovered/Resolved]
  - Rash [Recovered/Resolved]

NARRATIVE: CASE EVENT DATE: 20190415
